FAERS Safety Report 7220363-1 (Version None)
Quarter: 2011Q1

REPORT INFORMATION
  Report Type: 
  Country: None (occurrence: None)
  Receive Date: 20110111
  Receipt Date: 20101223
  Transmission Date: 20110831
  Serious: Yes (Hospitalization)
  Sender: FDA-Public Use
  Company Number: US-ASTRAZENECA-2010SE59735

PATIENT
  Age: 33 Year
  Sex: Female
  Weight: 77.1 kg

DRUGS (7)
  1. ABILIFY [Concomitant]
     Indication: HALLUCINATION
     Route: 048
     Dates: start: 20100101, end: 20100101
  2. XANAX [Concomitant]
     Route: 048
     Dates: start: 20100101, end: 20100101
  3. TEGRETOL [Concomitant]
  4. SEROQUEL XR [Suspect]
     Indication: HALLUCINATION
     Route: 048
     Dates: start: 20101208
  5. SEROQUEL XR [Suspect]
     Indication: SCHIZOAFFECTIVE DISORDER
     Route: 048
     Dates: start: 20101208
  6. XANAX [Concomitant]
     Indication: ANXIETY
     Route: 048
     Dates: start: 20100101, end: 20100101
  7. LITHIUM CARBONATE [Concomitant]
     Indication: HALLUCINATION
     Route: 048
     Dates: start: 20100101, end: 20100101

REACTIONS (3)
  - HALLUCINATION, AUDITORY [None]
  - BLOOD COUNT ABNORMAL [None]
  - LEUKOPENIA [None]
